FAERS Safety Report 23528890 (Version 2)
Quarter: 2024Q3

REPORT INFORMATION
  Report Type: Report from Study
  Country: CA (occurrence: CA)
  Receive Date: 20240215
  Receipt Date: 20240731
  Transmission Date: 20241017
  Serious: Yes (Hospitalization)
  Sender: AMGEN
  Company Number: CA-Vifor (International) Inc.-VIT-2024-01189

PATIENT
  Sex: Female

DRUGS (2)
  1. AVACOPAN [Suspect]
     Active Substance: AVACOPAN
     Indication: Vasculitis
     Dosage: 30 MILLIGRAM, QD
     Route: 048
     Dates: start: 20231215
  2. AVACOPAN [Suspect]
     Active Substance: AVACOPAN
     Dosage: 3 TABLETS TWICE DAILY
     Route: 048
     Dates: start: 20240212, end: 2024

REACTIONS (2)
  - Abdominal distension [Unknown]
  - Therapy interrupted [Unknown]

NARRATIVE: CASE EVENT DATE: 20240101
